FAERS Safety Report 23196986 (Version 1)
Quarter: 2023Q4

REPORT INFORMATION
  Report Type: Spontaneous
  Country: US (occurrence: None)
  Receive Date: 20231116
  Receipt Date: 20231116
  Transmission Date: 20240110
  Serious: Yes (Other)
  Sender: FDA-Public Use
  Company Number: None

PATIENT
  Age: 37 Year
  Sex: Female
  Weight: 90 kg

DRUGS (1)
  1. SUBUTEX [Suspect]
     Active Substance: BUPRENORPHINE HYDROCHLORIDE
     Indication: Drug dependence
     Dosage: OTHER QUANTITY : 2.5 TABLET(S);?
     Route: 060
     Dates: start: 20150101, end: 20231115

REACTIONS (3)
  - Dental caries [None]
  - Tooth fracture [None]
  - Tooth loss [None]

NARRATIVE: CASE EVENT DATE: 20160101
